FAERS Safety Report 11589348 (Version 3)
Quarter: 2016Q1

REPORT INFORMATION
  Report Type: Report from Study
  Country: US (occurrence: US)
  Receive Date: 20151002
  Receipt Date: 20160202
  Transmission Date: 20160525
  Serious: No
  Sender: FDA-Public Use
  Company Number: PHEH2015US019411

PATIENT
  Age: 44 Year
  Sex: Male
  Weight: 91 kg

DRUGS (4)
  1. PROBIOTIC                          /07343501/ [Concomitant]
     Indication: ROUTINE HEALTH MAINTENANCE
     Route: 048
  2. ALLEGRA [Concomitant]
     Active Substance: FEXOFENADINE HYDROCHLORIDE
     Indication: HYPERSENSITIVITY
     Dosage: 1 DF, UNK
     Route: 048
  3. BACLOFEN. [Concomitant]
     Active Substance: BACLOFEN
     Indication: MULTIPLE SCLEROSIS
     Route: 048
  4. GILENYA [Suspect]
     Active Substance: FINGOLIMOD HYDROCHLORIDE
     Indication: MULTIPLE SCLEROSIS
     Dosage: 0.5 MG, QD
     Route: 048
     Dates: start: 20150929

REACTIONS (3)
  - Anxiety [Recovered/Resolved]
  - Heart rate decreased [Recovered/Resolved]
  - Feeling abnormal [Unknown]

NARRATIVE: CASE EVENT DATE: 20150929
